FAERS Safety Report 5479641-9 (Version None)
Quarter: 2007Q4

REPORT INFORMATION
  Report Type: 
  Country: None (occurrence: None)
  Receive Date: 20071008
  Receipt Date: 20071003
  Transmission Date: 20080405
  Serious: Yes (Hospitalization)
  Sender: FDA-Public Use
  Company Number: A0685934A

PATIENT
  Age: 60 Year
  Sex: Male

DRUGS (4)
  1. AVANDIA [Suspect]
     Dosage: 20MG PER DAY
     Route: 048
     Dates: start: 20040401, end: 20070401
  2. METFORMIN HCL [Concomitant]
  3. CRESTOR [Concomitant]
  4. ACTOS [Concomitant]

REACTIONS (1)
  - MYOCARDIAL INFARCTION [None]
